FAERS Safety Report 23043156 (Version 1)
Quarter: 2023Q4

REPORT INFORMATION
  Report Type: Spontaneous
  Country: US (occurrence: US)
  Receive Date: 20231009
  Receipt Date: 20231009
  Transmission Date: 20240109
  Serious: Yes (Other)
  Sender: FDA-Public Use
  Company Number: US-AUROBINDO-AUR-APL-2023-062372

PATIENT
  Age: 38 Year
  Sex: Female

DRUGS (4)
  1. DIPHENHYDRAMINE [Suspect]
     Active Substance: DIPHENHYDRAMINE
     Indication: Product used for unknown indication
     Dosage: UNK
     Route: 065
  2. LORAZEPAM [Suspect]
     Active Substance: LORAZEPAM
     Indication: Agitation
     Dosage: 2 MILLIGRAM
     Route: 065
  3. DIAZEPAM [Concomitant]
     Active Substance: DIAZEPAM
     Indication: Product used for unknown indication
     Dosage: 10 MILLIGRAM, FOUR TIMES/DAY
     Route: 065
  4. VENLAFAXINE [Concomitant]
     Active Substance: VENLAFAXINE HYDROCHLORIDE
     Indication: Product used for unknown indication
     Dosage: 225 MILLIGRAM, DAILY ( 150MG EVERY MORNING AND 75MG EVERY EVENING)
     Route: 065

REACTIONS (11)
  - Urinary retention [Unknown]
  - Exposure during pregnancy [Unknown]
  - Abdominal pain [Unknown]
  - Anxiety [Unknown]
  - Agitation [Unknown]
  - Mydriasis [Unknown]
  - Nausea [Unknown]
  - Drug ineffective [Unknown]
  - Intentional overdose [Unknown]
  - Premature labour [Unknown]
  - Toxicity to various agents [Unknown]
